FAERS Safety Report 21547482 (Version 1)
Quarter: 2022Q4

REPORT INFORMATION
  Report Type: Spontaneous
  Country: None (occurrence: ES)
  Receive Date: 20221103
  Receipt Date: 20221103
  Transmission Date: 20230113
  Serious: Yes (Hospitalization, Other)
  Sender: FDA-Public Use
  Company Number: ES-B.Braun Medical Inc.-2134452

PATIENT
  Age: 81 Year
  Sex: Female

DRUGS (14)
  1. ACETAMINOPHEN [Suspect]
     Active Substance: ACETAMINOPHEN
  2. ENALAPRIL MALEATE [Suspect]
     Active Substance: ENALAPRIL MALEATE
  3. FUROSEMIDE [Suspect]
     Active Substance: FUROSEMIDE
  4. BRINZOLAMIDE [Suspect]
     Active Substance: BRINZOLAMIDE
  5. CHOLECALCIFEROL [Suspect]
     Active Substance: CHOLECALCIFEROL
  6. ATORVASTATIN CALCIUM [Suspect]
     Active Substance: ATORVASTATIN CALCIUM
  7. APIXABAN [Suspect]
     Active Substance: APIXABAN
  8. IBANDRONIC ACID [Suspect]
     Active Substance: IBANDRONIC ACID
  9. METILDIGOXIN [Suspect]
     Active Substance: METILDIGOXIN
  10. EPLERENONE [Suspect]
     Active Substance: EPLERENONE
  11. MOMETASONE FUROATE [Suspect]
     Active Substance: MOMETASONE FUROATE
  12. OMEPRAZOLE [Suspect]
     Active Substance: OMEPRAZOLE
  13. AMLODIPINE [Suspect]
     Active Substance: AMLODIPINE BESYLATE
  14. BETAMETHASONE\CALCIPOTRIENE [Suspect]
     Active Substance: BETAMETHASONE\CALCIPOTRIENE

REACTIONS (7)
  - Wound haemorrhage [Unknown]
  - Dyspnoea [Unknown]
  - Bradycardia [Unknown]
  - Dizziness [Unknown]
  - Off label use [Unknown]
  - Therapeutic product effect decreased [Unknown]
  - Medication error [Unknown]
